FAERS Safety Report 9273831 (Version 1)
Quarter: 2013Q2

REPORT INFORMATION
  Report Type: Spontaneous
  Country: US (occurrence: US)
  Receive Date: 20130506
  Receipt Date: 20130506
  Transmission Date: 20140414
  Serious: No
  Sender: FDA-Public Use
  Company Number: US-AMGEN-USASP2013024209

PATIENT
  Age: 52 Year
  Sex: Female
  Weight: 79.37 kg

DRUGS (14)
  1. ENBREL [Suspect]
     Indication: RHEUMATOID ARTHRITIS
     Dosage: 50 MG, QWK
     Route: 058
     Dates: start: 20120725, end: 20130322
  2. NAPROSYN /00256201/ [Concomitant]
     Dosage: 375 MG, UNK
  3. PROTONIX [Concomitant]
     Dosage: 20 MG, UNK
  4. AZULFIDINE [Concomitant]
     Dosage: 500 MG, UNK
  5. PAXIL                              /00500401/ [Concomitant]
     Dosage: 10 MG, UNK
  6. ULTRAM                             /00599202/ [Concomitant]
     Dosage: 50 MG, UNK
  7. METHOTREXATE [Concomitant]
     Dosage: 2.5 MG, UNK
  8. VIBRAMYCIN                         /00055702/ [Concomitant]
     Dosage: 100 MG, UNK
  9. LYRICA [Concomitant]
     Dosage: 100 MG, UNK
  10. IBUPROFEN [Concomitant]
     Dosage: 200 MG, UNK
  11. SKELAXIN                           /00611501/ [Concomitant]
     Dosage: 800 MG, UNK
  12. PROAIR HFA [Concomitant]
     Dosage: UNK
  13. FOLIC ACID [Concomitant]
     Dosage: UNK
  14. ADIPEX-P [Concomitant]
     Dosage: 37.5 MG, UNK

REACTIONS (4)
  - Rhinorrhoea [Not Recovered/Not Resolved]
  - Sinus headache [Not Recovered/Not Resolved]
  - Ear congestion [Not Recovered/Not Resolved]
  - Bronchitis [Not Recovered/Not Resolved]
